FAERS Safety Report 16588812 (Version 1)
Quarter: 2019Q3

REPORT INFORMATION
  Report Type: Spontaneous
  Country: DE (occurrence: DE)
  Receive Date: 20190718
  Receipt Date: 20190718
  Transmission Date: 20191004
  Serious: Yes (Hospitalization)
  Sender: FDA-Public Use
  Company Number: DE-TEVA-2019-DE-1077550

PATIENT
  Sex: Female

DRUGS (1)
  1. VALSARTAN. [Suspect]
     Active Substance: VALSARTAN
     Dosage: 160 MILLIGRAM DAILY;
     Route: 048
     Dates: start: 2012, end: 2018

REACTIONS (2)
  - Lung neoplasm malignant [Unknown]
  - Product impurity [Recovered/Resolved]

NARRATIVE: CASE EVENT DATE: 2012
